FAERS Safety Report 6234538-1 (Version None)
Quarter: 2009Q2

REPORT INFORMATION
  Report Type: 
  Country: None (occurrence: None)
  Receive Date: 20090615
  Receipt Date: 20090427
  Transmission Date: 20091009
  Serious: No
  Sender: FDA-Public Use
  Company Number: DSA_33564_2009

PATIENT
  Sex: Female

DRUGS (12)
  1. XENAZINE [Suspect]
     Indication: ATAXIA
     Dosage: 25 MG TID, 12.5 MG QD, 12.5 MG BID, EVERY MORNING AND EVENING, 25 MG BID
     Dates: start: 20090101, end: 20090101
  2. XENAZINE [Suspect]
     Indication: HUNTINGTON'S CHOREA
     Dosage: 25 MG TID, 12.5 MG QD, 12.5 MG BID, EVERY MORNING AND EVENING, 25 MG BID
     Dates: start: 20090101, end: 20090101
  3. XENAZINE [Suspect]
     Indication: TORTICOLLIS
     Dosage: 25 MG TID, 12.5 MG QD, 12.5 MG BID, EVERY MORNING AND EVENING, 25 MG BID
     Dates: start: 20090101, end: 20090101
  4. XENAZINE [Suspect]
     Indication: ATAXIA
     Dosage: 25 MG TID, 12.5 MG QD, 12.5 MG BID, EVERY MORNING AND EVENING, 25 MG BID
     Dates: start: 20090301, end: 20090101
  5. XENAZINE [Suspect]
     Indication: HUNTINGTON'S CHOREA
     Dosage: 25 MG TID, 12.5 MG QD, 12.5 MG BID, EVERY MORNING AND EVENING, 25 MG BID
     Dates: start: 20090301, end: 20090101
  6. XENAZINE [Suspect]
     Indication: TORTICOLLIS
     Dosage: 25 MG TID, 12.5 MG QD, 12.5 MG BID, EVERY MORNING AND EVENING, 25 MG BID
     Dates: start: 20090301, end: 20090101
  7. XENAZINE [Suspect]
     Indication: ATAXIA
     Dosage: 25 MG TID, 12.5 MG QD, 12.5 MG BID, EVERY MORNING AND EVENING, 25 MG BID
     Dates: start: 20090401, end: 20090401
  8. XENAZINE [Suspect]
     Indication: HUNTINGTON'S CHOREA
     Dosage: 25 MG TID, 12.5 MG QD, 12.5 MG BID, EVERY MORNING AND EVENING, 25 MG BID
     Dates: start: 20090401, end: 20090401
  9. XENAZINE [Suspect]
     Indication: TORTICOLLIS
     Dosage: 25 MG TID, 12.5 MG QD, 12.5 MG BID, EVERY MORNING AND EVENING, 25 MG BID
     Dates: start: 20090401, end: 20090401
  10. KLONOPIN [Concomitant]
  11. ELAVIL [Concomitant]
  12. BOTOX [Concomitant]

REACTIONS (5)
  - BALANCE DISORDER [None]
  - FATIGUE [None]
  - INCORRECT DOSE ADMINISTERED [None]
  - INSOMNIA [None]
  - SPEECH DISORDER [None]
